FAERS Safety Report 16951819 (Version 2)
Quarter: 2019Q4

REPORT INFORMATION
  Report Type: Spontaneous
  Country: US (occurrence: US)
  Receive Date: 20191023
  Receipt Date: 20191025
  Transmission Date: 20200122
  Serious: No
  Sender: FDA-Public Use
  Company Number: US-PFIZER INC-2019458514

PATIENT
  Sex: Male
  Weight: 91.61 kg

DRUGS (1)
  1. ALPRAZOLAM. [Suspect]
     Active Substance: ALPRAZOLAM
     Dosage: UNK, 1X/DAY ,(ONE HALF PILL PER NIGHT BY MOUTH)
     Route: 048

REACTIONS (9)
  - Hangover [Unknown]
  - Anxiety [Unknown]
  - Therapeutic product effect variable [Unknown]
  - Poor quality product administered [Unknown]
  - Sleep terror [Unknown]
  - Weight increased [Unknown]
  - Product physical issue [Unknown]
  - Abnormal dreams [Unknown]
  - Headache [Unknown]

NARRATIVE: CASE EVENT DATE: 20191016
